FAERS Safety Report 17838201 (Version 1)
Quarter: 2020Q2

REPORT INFORMATION
  Report Type: Spontaneous
  Country: CN (occurrence: CN)
  Receive Date: 20200528
  Receipt Date: 20200528
  Transmission Date: 20200714
  Serious: Yes (Hospitalization)
  Sender: FDA-Public Use
  Company Number: CN-BAXTER-2020BAX010999

PATIENT
  Age: 55 Year
  Sex: Male

DRUGS (7)
  1. 0.9% SODIUM CHLORIDE INJECTION [Suspect]
     Active Substance: SODIUM CHLORIDE
     Dosage: VINCRISTINE SULFATE 2 MG + 0.9% NACL
     Route: 041
     Dates: start: 20200315, end: 20200315
  2. HOLOXAN [Suspect]
     Active Substance: IFOSFAMIDE
     Indication: LYMPHOMA
     Dosage: IFOSFAMIDE 1 G + 0.9% NACL
     Route: 041
     Dates: start: 20200315, end: 20200315
  3. VINCRISTINE SULFATE. [Suspect]
     Active Substance: VINCRISTINE SULFATE
     Indication: LYMPHOMA
     Dosage: VINCRISTINE SULFATE 2 MG + 0.9% NACL
     Route: 041
     Dates: start: 20200315, end: 20200315
  4. 5% GLUCOSE  INJECTION [Suspect]
     Active Substance: DEXTROSE
     Indication: MEDICATION DILUTION
     Dosage: AIDASHENG 50 MG + 5% GLUCOSE
     Route: 041
     Dates: start: 20200315, end: 20200316
  5. PREDNISONE. [Suspect]
     Active Substance: PREDNISONE
     Indication: LYMPHOMA
     Dosage: TABLET, 12 TABLETS
     Route: 048
     Dates: start: 20200415
  6. 0.9% SODIUM CHLORIDE INJECTION [Suspect]
     Active Substance: SODIUM CHLORIDE
     Indication: MEDICATION DILUTION
     Dosage: IFOSFAMIDE 1 G + 0.9% NACL
     Route: 041
     Dates: start: 20200315, end: 20200315
  7. AIDASHENG [Suspect]
     Active Substance: EPIRUBICIN HYDROCHLORIDE
     Indication: LYMPHOMA
     Dosage: AIDASHENG 50 MG + 5% GLUCOSE
     Route: 041
     Dates: start: 20200315, end: 20200316

REACTIONS (1)
  - Bone marrow failure [Recovering/Resolving]

NARRATIVE: CASE EVENT DATE: 20200319
